FAERS Safety Report 20236735 (Version 2)
Quarter: 2022Q1

REPORT INFORMATION
  Report Type: Spontaneous
  Country: GB (occurrence: GB)
  Receive Date: 20211228
  Receipt Date: 20220110
  Transmission Date: 20220423
  Serious: No
  Sender: FDA-Public Use
  Company Number: GB-GLAXOSMITHKLINE-GB2021EME263721

PATIENT
  Sex: Male

DRUGS (1)
  1. SOTROVIMAB [Suspect]
     Active Substance: SOTROVIMAB
     Indication: Product used for unknown indication
     Dosage: UNK
     Dates: start: 20211224

REACTIONS (6)
  - Pain [Unknown]
  - Pyrexia [Recovering/Resolving]
  - Blood pressure increased [Recovering/Resolving]
  - Heart rate increased [Recovering/Resolving]
  - Condition aggravated [Recovering/Resolving]
  - Therapeutic product effect delayed [Unknown]

NARRATIVE: CASE EVENT DATE: 20211224
